FAERS Safety Report 5175412-1 (Version None)
Quarter: 2006Q4

REPORT INFORMATION
  Report Type: 
  Country: None (occurrence: None)
  Receive Date: 20061212
  Receipt Date: 20061212
  Transmission Date: 20070319
  Serious: No
  Sender: FDA-Public Use
  Company Number: None

PATIENT
  Age: 44 Year
  Sex: Female
  Weight: 60.782 kg

DRUGS (3)
  1. TYLENOL COLD MULTI-SYMPTOM 24 COOLBURST CAPLETS [Suspect]
     Indication: COUGH
     Dosage: 2 CAPLETS EVERY 4 PO
     Route: 048
     Dates: start: 20061207, end: 20061211
  2. TYLENOL COLD MULTI-SYMPTOM 24 COOLBURST CAPLETS [Suspect]
     Indication: NASOPHARYNGITIS
     Dosage: 2 CAPLETS EVERY 4 PO
     Route: 048
     Dates: start: 20061207, end: 20061211
  3. TYLENOL COLD MULTI-SYMPTOM 24 COOLBURST CAPLETS [Suspect]
     Indication: PHARYNGOLARYNGEAL PAIN
     Dosage: 2 CAPLETS EVERY 4 PO
     Route: 048
     Dates: start: 20061207, end: 20061211

REACTIONS (5)
  - CONDITION AGGRAVATED [None]
  - COUGH [None]
  - DRUG INEFFECTIVE [None]
  - NASOPHARYNGEAL DISORDER [None]
  - PHARMACEUTICAL PRODUCT COUNTERFEIT [None]
